FAERS Safety Report 4402244-1 (Version None)
Quarter: 2004Q3

REPORT INFORMATION
  Report Type: 
  Country: None (occurrence: None)
  Receive Date: 20040720
  Receipt Date: 20040713
  Transmission Date: 20050211
  Serious: Yes (Other)
  Sender: FDA-Public Use
  Company Number: PHFR2004GB02804

PATIENT
  Age: 72 Year
  Sex: Female
  Weight: 38 kg

DRUGS (6)
  1. RIVASTIGMINE [Suspect]
     Indication: DEMENTIA ALZHEIMER'S TYPE
     Dosage: 6 MG, BID
     Route: 048
     Dates: start: 20020614
  2. WARFARIN SODIUM [Concomitant]
     Dosage: 2.5 MG, QOD
     Route: 065
  3. DIGOXIN [Concomitant]
     Dosage: 125 UG, QD
     Route: 065
  4. FRUSEMIDE [Concomitant]
     Dosage: 40 MG, BID
     Route: 048
  5. PERINDOPRIL [Concomitant]
     Dosage: 4 MG, QD
     Route: 065
  6. COMBIVENT [Concomitant]
     Route: 065

REACTIONS (1)
  - FACIAL PALSY [None]
